FAERS Safety Report 4690789-9 (Version None)
Quarter: 2005Q2

REPORT INFORMATION
  Report Type: 
  Country: None (occurrence: None)
  Receive Date: 20050613
  Receipt Date: 20050601
  Transmission Date: 20051028
  Serious: Yes (Hospitalization)
  Sender: FDA-Public Use
  Company Number: US015151

PATIENT
  Age: 71 Year
  Sex: Female

DRUGS (3)
  1. GABITRIL [Suspect]
     Indication: NEUROPATHY PERIPHERAL
     Dosage: 4 MG BID ORAL
     Route: 048
     Dates: end: 20050426
  2. GABITRIL [Suspect]
     Indication: NEUROPATHY PERIPHERAL
     Dates: start: 20050427
  3. NEURONTIN [Suspect]
     Dosage: 300 MG ORAL
     Route: 048
     Dates: start: 20050302

REACTIONS (11)
  - BLOOD GLUCOSE DECREASED [None]
  - CARDIOVASCULAR DISORDER [None]
  - CEREBRAL DISORDER [None]
  - CONVULSION [None]
  - DRUG INTERACTION [None]
  - DYSKINESIA [None]
  - LOSS OF CONSCIOUSNESS [None]
  - MUSCLE TWITCHING [None]
  - SPEECH DISORDER [None]
  - SYNCOPE [None]
  - TREMOR [None]
